FAERS Safety Report 4662888-9 (Version None)
Quarter: 2005Q2

REPORT INFORMATION
  Report Type: 
  Country: None (occurrence: None)
  Receive Date: 20050502
  Receipt Date: 20050211
  Transmission Date: 20051028
  Serious: Yes (Other)
  Sender: FDA-Public Use
  Company Number: 200511105US

PATIENT
  Sex: Male

DRUGS (6)
  1. KETEK [Suspect]
     Indication: SINUSITIS
     Dosage: 800 MG QD PO
     Route: 048
  2. VYTORIN [Suspect]
     Indication: BLOOD CHOLESTEROL INCREASED
  3. GRAPEFRUIT JUICE [Suspect]
  4. HYDROCHLOROTHIAZIDE, IRBESARTAN (AVALIDE) [Concomitant]
  5. CARDIZEM [Concomitant]
  6. TAMSULOSIN HYDROCHLORIDE [Concomitant]

REACTIONS (1)
  - MUSCULAR WEAKNESS [None]
